FAERS Safety Report 11458326 (Version 2)
Quarter: 2015Q4

REPORT INFORMATION
  Report Type: Spontaneous
  Country: JP (occurrence: JP)
  Receive Date: 20150904
  Receipt Date: 20151102
  Transmission Date: 20160304
  Serious: Yes (Other)
  Sender: FDA-Public Use
  Company Number: JP-PFIZER INC-2015291848

PATIENT
  Age: 64 Year
  Sex: Female
  Weight: 48.2 kg

DRUGS (13)
  1. MYSLEE [Concomitant]
     Active Substance: ZOLPIDEM TARTRATE
     Dosage: 5 MG, 1X/DAY
     Dates: start: 20140227, end: 20140619
  2. CYMBALTA [Concomitant]
     Active Substance: DULOXETINE HYDROCHLORIDE
     Dosage: 20 MG, ALTERNATE DAY
     Dates: start: 20140522, end: 20140821
  3. CYMBALTA [Concomitant]
     Active Substance: DULOXETINE HYDROCHLORIDE
     Dosage: 20 MG, 1X/DAY
     Dates: start: 20140822, end: 20141224
  4. SOLANAX [Concomitant]
     Active Substance: ALPRAZOLAM
     Dosage: 0.4 MG, 1X/DAY
  5. LYRICA [Suspect]
     Active Substance: PREGABALIN
     Dosage: 25 MG, 1X/DAY
     Route: 048
     Dates: start: 20150326, end: 20150520
  6. EDIROL [Concomitant]
     Active Substance: ELDECALCITOL
     Dosage: 0.75 ?G, 1X/DAY
     Dates: start: 20140227
  7. CYMBALTA [Concomitant]
     Active Substance: DULOXETINE HYDROCHLORIDE
     Dosage: 20 MG, ALTERNATE DAY
     Dates: start: 20141225
  8. LYRICA [Suspect]
     Active Substance: PREGABALIN
     Dosage: 25 MG, ALTERNATE DAY
     Route: 048
     Dates: start: 20150521, end: 20150829
  9. CYMBALTA [Concomitant]
     Active Substance: DULOXETINE HYDROCHLORIDE
     Dosage: 30 MG, 1X/DAY
     Dates: start: 20140227, end: 20140416
  10. CYMBALTA [Concomitant]
     Active Substance: DULOXETINE HYDROCHLORIDE
     Dosage: 20 MG, 1X/DAY
     Dates: start: 20140417, end: 20140521
  11. TRAMCET [Concomitant]
     Active Substance: ACETAMINOPHEN\TRAMADOL
     Dosage: 1 DF, 1-2 TIMES DAILY
  12. CYMBALTA [Concomitant]
     Active Substance: DULOXETINE HYDROCHLORIDE
     Dosage: 20 MG, 1X/DAY
     Dates: start: 20131212, end: 20140226
  13. MYSLEE [Concomitant]
     Active Substance: ZOLPIDEM TARTRATE
     Dosage: 5 MG, 1X/DAY
     Dates: start: 20140326

REACTIONS (3)
  - Retinal haemorrhage [Recovered/Resolved]
  - Glaucoma [Not Recovered/Not Resolved]
  - Optic nerve cupping [Unknown]

NARRATIVE: CASE EVENT DATE: 20150626
